FAERS Safety Report 15022954 (Version 1)
Quarter: 2018Q2

REPORT INFORMATION
  Report Type: Spontaneous
  Country: CA (occurrence: CA)
  Receive Date: 20180618
  Receipt Date: 20180618
  Transmission Date: 20180711
  Serious: Yes (Other)
  Sender: FDA-Public Use
  Company Number: CA-IMPAX LABORATORIES, INC-2018-IPXL-02017

PATIENT
  Age: 9 Year
  Sex: Male

DRUGS (6)
  1. ALEMTUZUMAB [Suspect]
     Active Substance: ALEMTUZUMAB
     Indication: FAMILIAL HAEMOPHAGOCYTIC LYMPHOHISTIOCYTOSIS
     Dosage: 2.5MG/KG, UNK
     Route: 065
  2. HYDROCORTISONE. [Suspect]
     Active Substance: HYDROCORTISONE
     Indication: FAMILIAL HAEMOPHAGOCYTIC LYMPHOHISTIOCYTOSIS
     Dosage: UNK (X 3 DOSES)
     Route: 037
  3. HYDROCORTISONE. [Suspect]
     Active Substance: HYDROCORTISONE
     Indication: PRODUCT USE IN UNAPPROVED INDICATION
  4. ARA-C [Suspect]
     Active Substance: CYTARABINE
     Indication: FAMILIAL HAEMOPHAGOCYTIC LYMPHOHISTIOCYTOSIS
     Dosage: UNK (X 3 DOSES)
     Route: 037
  5. METHYLPREDNISOLONE. [Suspect]
     Active Substance: METHYLPREDNISOLONE
     Indication: FAMILIAL HAEMOPHAGOCYTIC LYMPHOHISTIOCYTOSIS
     Dosage: UNK (X 4 DOSES)
     Route: 042
  6. METHOTREXATE. [Suspect]
     Active Substance: METHOTREXATE
     Indication: FAMILIAL HAEMOPHAGOCYTIC LYMPHOHISTIOCYTOSIS
     Dosage: UNK (X 4 DOSES)
     Route: 037

REACTIONS (7)
  - Mucosal inflammation [Unknown]
  - Respiratory disorder [Unknown]
  - Familial haemophagocytic lymphohistiocytosis [Unknown]
  - Cytomegalovirus infection [Unknown]
  - Herpes simplex [Unknown]
  - Immune reconstitution inflammatory syndrome [Unknown]
  - Drug ineffective for unapproved indication [Unknown]
